FAERS Safety Report 18216821 (Version 1)
Quarter: 2020Q3

REPORT INFORMATION
  Report Type: Spontaneous
  Country: US (occurrence: US)
  Receive Date: 20200901
  Receipt Date: 20200901
  Transmission Date: 20201103
  Serious: Yes (Hospitalization, Other)
  Sender: FDA-Public Use
  Company Number: US-APOTEX-2020AP017000

PATIENT
  Age: 20 Year
  Sex: Male

DRUGS (3)
  1. CANNABIS [Suspect]
     Active Substance: CANNABIS SATIVA SUBSP. INDICA TOP
     Indication: PRODUCT USED FOR UNKNOWN INDICATION
     Dosage: UNK
     Route: 065
  2. LEVETIRACETAM. [Suspect]
     Active Substance: LEVETIRACETAM
     Indication: SEIZURE
     Dosage: 500 MILLIGRAM, BID
     Route: 065
  3. ALPRAZOLAM. [Suspect]
     Active Substance: ALPRAZOLAM
     Indication: PRODUCT USED FOR UNKNOWN INDICATION
     Dosage: UNK
     Route: 065

REACTIONS (10)
  - Postictal psychosis [Recovered/Resolved]
  - Intentional self-injury [Recovered/Resolved]
  - Prescription drug used without a prescription [Unknown]
  - Drug abuse [Unknown]
  - Depression [Recovered/Resolved]
  - Therapy cessation [Unknown]
  - Suicide attempt [Recovered/Resolved]
  - Generalised tonic-clonic seizure [Unknown]
  - Treatment noncompliance [Unknown]
  - Drug withdrawal convulsions [Unknown]
